FAERS Safety Report 4672399-2 (Version None)
Quarter: 2005Q2

REPORT INFORMATION
  Report Type: 
  Country: None (occurrence: None)
  Receive Date: 20050524
  Receipt Date: 20050512
  Transmission Date: 20051028
  Serious: Yes (Other)
  Sender: FDA-Public Use
  Company Number: SE-JNJFOC-20050503489

PATIENT
  Age: 65 Year
  Sex: Female

DRUGS (6)
  1. REMICADE [Suspect]
     Indication: RHEUMATOID ARTHRITIS
     Route: 042
  2. METHOTREXATE [Concomitant]
  3. CALCICHEW D3 [Concomitant]
  4. ALVEDON [Concomitant]
  5. SALURES [Concomitant]
  6. PLENDIL [Concomitant]

REACTIONS (1)
  - SQUAMOUS CELL CARCINOMA [None]
